FAERS Safety Report 11590892 (Version 7)
Quarter: 2017Q2

REPORT INFORMATION
  Report Type: Report from Study
  Country: US (occurrence: US)
  Receive Date: 20151002
  Receipt Date: 20170609
  Transmission Date: 20170829
  Serious: Yes (Other)
  Sender: FDA-Public Use
  Company Number: US-AMGEN-USASP2015100931

PATIENT
  Age: 12 Year
  Sex: Female
  Weight: 49.88 kg

DRUGS (7)
  1. ENBREL [Suspect]
     Active Substance: ETANERCEPT
     Dosage: 25 MG, 2 TIMES/WK
     Route: 065
  2. ENBREL [Suspect]
     Active Substance: ETANERCEPT
     Indication: JUVENILE IDIOPATHIC ARTHRITIS
     Dosage: 50 MG, QWK
     Route: 065
     Dates: start: 201402
  3. ENBREL [Suspect]
     Active Substance: ETANERCEPT
     Dosage: 25 MG, 2 TIMES/WK
     Route: 065
     Dates: start: 201510
  4. TREXALL [Concomitant]
     Active Substance: METHOTREXATE SODIUM
     Dosage: 20 MG, QWK
     Dates: start: 2015
  5. NAPROXEN. [Concomitant]
     Active Substance: NAPROXEN
     Dosage: UNK UNK, BID
  6. FOLIC ACID. [Concomitant]
     Active Substance: FOLIC ACID
     Dosage: UNK
     Dates: start: 2015
  7. ENBREL [Suspect]
     Active Substance: ETANERCEPT
     Dosage: 50 MG, Q2WK
     Route: 065
     Dates: start: 201411, end: 2015

REACTIONS (16)
  - Musculoskeletal disorder [Unknown]
  - Injection site discolouration [Recovering/Resolving]
  - Peripheral swelling [Unknown]
  - Cough [Unknown]
  - Nervousness [Recovering/Resolving]
  - Injection site discomfort [Unknown]
  - Wrong technique in product usage process [Recovering/Resolving]
  - Swelling [Unknown]
  - Pain in jaw [Recovering/Resolving]
  - Injection site pain [Recovering/Resolving]
  - Intentional product misuse [Recovering/Resolving]
  - Injection site reaction [Recovering/Resolving]
  - Throat irritation [Unknown]
  - Juvenile idiopathic arthritis [Recovering/Resolving]
  - Injection site bruising [Recovering/Resolving]
  - Joint swelling [Unknown]

NARRATIVE: CASE EVENT DATE: 201411
